FAERS Safety Report 11662186 (Version 1)
Quarter: 2015Q4

REPORT INFORMATION
  Report Type: Other
  Country: GB (occurrence: GB)
  Receive Date: 20151026
  Receipt Date: 20151026
  Transmission Date: 20160304
  Serious: Yes (Other)
  Sender: FDA-Public Use
  Company Number: GB-MYLANLABS-2015M1035221

PATIENT

DRUGS (8)
  1. ALFUZOSIN HYDROCHLORIDE. [Suspect]
     Active Substance: ALFUZOSIN HYDROCHLORIDE
     Indication: BENIGN PROSTATIC HYPERPLASIA
     Dosage: 2.5 MG, BID
     Route: 048
     Dates: start: 20150410, end: 20150703
  2. NAPROXEN. [Concomitant]
     Active Substance: NAPROXEN
     Indication: BACK PAIN
     Dosage: 500 MG, BID
     Dates: start: 20150601, end: 20150722
  3. FLUDROCORTISONE [Concomitant]
     Active Substance: FLUDROCORTISONE
     Indication: ORTHOSTATIC HYPOTENSION
     Dosage: 1000 ?G, BID
     Dates: start: 201108
  4. LACTULOSE. [Concomitant]
     Active Substance: LACTULOSE
     Indication: CONSTIPATION
     Dosage: 30 ML, QD
     Dates: start: 201403
  5. OMEPRAZOLE. [Concomitant]
     Active Substance: OMEPRAZOLE
     Indication: HIATUS HERNIA
     Dosage: 20 MG, QD (MORNING)
     Dates: start: 2000
  6. PARACETAMOL [Concomitant]
     Active Substance: ACETAMINOPHEN
     Indication: SCIATICA
     Dosage: 1 G, UNK (FREQ: QDS)
     Dates: start: 20150716
  7. ASPIRIN                            /00002701/ [Concomitant]
     Active Substance: ASPIRIN
     Indication: THROMBOSIS PROPHYLAXIS
     Dosage: 45 MG, QD (MORNING)
     Dates: start: 1998, end: 20150722
  8. ADCAL D3 [Concomitant]
     Active Substance: CALCIUM CARBONATE\CHOLECALCIFEROL
     Indication: OSTEOPOROSIS
     Dosage: 1 DF, BID
     Dates: start: 200806

REACTIONS (3)
  - Swelling [Recovering/Resolving]
  - Cellulitis [Unknown]
  - Rash [Unknown]

NARRATIVE: CASE EVENT DATE: 2015
